FAERS Safety Report 21475899 (Version 1)
Quarter: 2022Q4

REPORT INFORMATION
  Report Type: Spontaneous
  Country: TH (occurrence: TH)
  Receive Date: 20221019
  Receipt Date: 20221019
  Transmission Date: 20230112
  Serious: No
  Sender: FDA-Public Use
  Company Number: TH-ALKEM LABORATORIES LIMITED-TH-ALKEM-2022-07592

PATIENT

DRUGS (1)
  1. AZATHIOPRINE [Suspect]
     Active Substance: AZATHIOPRINE
     Indication: Neuromyelitis optica spectrum disorder
     Dosage: UNK
     Route: 065

REACTIONS (3)
  - Adverse event [Unknown]
  - Adverse drug reaction [Unknown]
  - Treatment failure [Unknown]
